FAERS Safety Report 12738690 (Version 1)
Quarter: 2016Q3

REPORT INFORMATION
  Report Type: Spontaneous
  Country: US (occurrence: US)
  Receive Date: 20160912
  Receipt Date: 20160912
  Transmission Date: 20161109
  Serious: Yes (Life-Threatening, Disabling, Other)
  Sender: FDA-Public Use
  Company Number: None

PATIENT
  Age: 42 Year
  Sex: Female
  Weight: 67.95 kg

DRUGS (3)
  1. LYRICA [Concomitant]
     Active Substance: PREGABALIN
  2. ADULT MULTI VITAMIN [Concomitant]
  3. LORZONE [Suspect]
     Active Substance: CHLORZOXAZONE
     Indication: BACK PAIN
     Route: 048
     Dates: start: 20160706, end: 20160901

REACTIONS (5)
  - Nausea [None]
  - Chromaturia [None]
  - Vomiting [None]
  - Dizziness [None]
  - Hepatitis [None]

NARRATIVE: CASE EVENT DATE: 20160901
